FAERS Safety Report 7989561-3 (Version None)
Quarter: 2011Q4

REPORT INFORMATION
  Report Type: 
  Country: None (occurrence: None)
  Receive Date: 20111219
  Receipt Date: 20110812
  Transmission Date: 20120403
  Serious: No
  Sender: FDA-Public Use
  Company Number: US-ASTRAZENECA-2011SE48565

PATIENT
  Age: 55 Year
  Sex: Female
  Weight: 53.1 kg

DRUGS (1)
  1. CRESTOR [Suspect]
     Indication: BLOOD CHOLESTEROL INCREASED
     Route: 048
     Dates: start: 20110701

REACTIONS (4)
  - MYALGIA [None]
  - ARTHRALGIA [None]
  - FALL [None]
  - MUSCULAR WEAKNESS [None]
